FAERS Safety Report 18023040 (Version 3)
Quarter: 2021Q2

REPORT INFORMATION
  Report Type: Spontaneous
  Country: US (occurrence: US)
  Receive Date: 20200714
  Receipt Date: 20210629
  Transmission Date: 20210717
  Serious: Yes (Life-Threatening, Hospitalization)
  Sender: FDA-Public Use
  Company Number: US-TEVA-2020-US-1799928

PATIENT
  Age: 42 Year
  Sex: Female
  Weight: 75 kg

DRUGS (3)
  1. VALPROATE?SEMISODIUM [Suspect]
     Active Substance: DIVALPROEX SODIUM
     Indication: BIPOLAR I DISORDER
     Dosage: FORMULATION: EXTENDED RELEASE TABLET
     Route: 048
  2. NALOXONE [Suspect]
     Active Substance: NALOXONE
     Indication: RESPIRATORY DISTRESS
     Route: 065
  3. QUETIAPINE. [Suspect]
     Active Substance: QUETIAPINE
     Indication: BIPOLAR I DISORDER
     Dosage: FORMULATION: EXTENDED RELEASE TABLET
     Route: 048

REACTIONS (8)
  - Tachycardia [Unknown]
  - Respiratory distress [Recovering/Resolving]
  - Intentional overdose [Unknown]
  - Drug ineffective [Unknown]
  - Acinetobacter infection [Unknown]
  - Metabolic acidosis [Unknown]
  - Pneumonia aspiration [Unknown]
  - Unresponsive to stimuli [Unknown]
